FAERS Safety Report 7552436-8 (Version None)
Quarter: 2011Q2

REPORT INFORMATION
  Report Type: 
  Country: None (occurrence: None)
  Receive Date: 20110616
  Receipt Date: 20110609
  Transmission Date: 20111010
  Serious: Yes (Other)
  Sender: FDA-Public Use
  Company Number: US-BAYER-2011-050541

PATIENT
  Age: 62 Year
  Sex: Female

DRUGS (2)
  1. CITRACAL PETITES [Suspect]
     Dosage: BOTTLE COUNT 200S
     Route: 048
  2. CITRACAL [Suspect]
     Route: 048

REACTIONS (2)
  - CHOKING [None]
  - FOREIGN BODY [None]
